FAERS Safety Report 9288881 (Version 1)
Quarter: 2013Q2

REPORT INFORMATION
  Report Type: Spontaneous
  Country: GB (occurrence: GB)
  Receive Date: 20130514
  Receipt Date: 20130514
  Transmission Date: 20140414
  Serious: Yes (Other)
  Sender: FDA-Public Use
  Company Number: GB-VERTEX PHARMACEUTICALS INC-2013-006029

PATIENT
  Sex: Male

DRUGS (4)
  1. INCIVO [Suspect]
     Indication: HEPATITIS C
     Dosage: 750 MG, TID
     Route: 065
  2. RIBAVIRIN [Suspect]
     Indication: HEPATITIS C
     Dosage: DOSAGE FORM: UNSPECIFIED
     Route: 065
  3. RIBAVIRIN [Suspect]
     Dosage: DOSAGE FORM: UNSPECIFIED
     Route: 065
  4. PEGINTERFERON ALFA [Concomitant]
     Indication: HEPATITIS C
     Dosage: DOSAGE FORM: UNSPECIFIED
     Route: 065

REACTIONS (6)
  - Blood albumin decreased [Unknown]
  - Lethargy [Unknown]
  - Fatigue [Unknown]
  - Anaemia [Unknown]
  - Rash [Unknown]
  - Nausea [Unknown]
